FAERS Safety Report 8041130-5 (Version None)
Quarter: 2012Q1

REPORT INFORMATION
  Report Type: 
  Country: None (occurrence: None)
  Receive Date: 20120112
  Receipt Date: 20120104
  Transmission Date: 20120608
  Serious: Yes (Disabling)
  Sender: FDA-Public Use
  Company Number: US-BAYER-2011-090602

PATIENT
  Age: 43 Year
  Sex: Female

DRUGS (12)
  1. NEXIUM [Concomitant]
     Dosage: 40 MG, QD
     Route: 048
  2. EFFEXOR [Concomitant]
     Dosage: 225 MG, QD
     Route: 048
  3. SIMVASTATIN [Concomitant]
     Dosage: 40 MG, QD
     Route: 048
  4. NEURONTIN [Concomitant]
     Dosage: 300 MG, QD
     Route: 048
  5. DILTIAZEM CD [Concomitant]
     Dosage: 240 MG, QD
     Route: 048
  6. DROSPIRENONE AND ETHINYL ESTRADIOL [Suspect]
     Dosage: UNK
     Dates: start: 20060501, end: 20090901
  7. INDOCIN [Concomitant]
     Dosage: 75 MG, QD
     Route: 048
  8. YASMIN [Suspect]
     Dosage: UNK
     Dates: start: 20060501, end: 20090901
  9. AMBIEN [Concomitant]
     Dosage: 10 MG, HS
     Route: 048
  10. HYDROCHLOROTHIAZIDE [Concomitant]
     Dosage: 12.5 MG, QD
     Route: 048
  11. LABETALOL HCL [Concomitant]
     Dosage: 100 MG, QD
     Route: 048
  12. YAZ [Suspect]
     Dosage: UNK
     Dates: start: 20060501, end: 20090901

REACTIONS (6)
  - INJURY [None]
  - DEFORMITY [None]
  - CEREBROVASCULAR ACCIDENT [None]
  - QUALITY OF LIFE DECREASED [None]
  - PAIN [None]
  - DISABILITY [None]
